FAERS Safety Report 10416920 (Version 2)
Quarter: 2014Q3

REPORT INFORMATION
  Report Type: Spontaneous
  Country: US (occurrence: None)
  Receive Date: 20140826
  Receipt Date: 20140905
  Transmission Date: 20150326
  Serious: Yes (Hospitalization)
  Sender: FDA-Public Use
  Company Number: 201408098

PATIENT
  Age: 59 Year
  Sex: Male

DRUGS (1)
  1. XIAFLEX [Suspect]
     Active Substance: COLLAGENASE CLOSTRIDIUM HISTOLYTICUM
     Indication: PEYRONIE^S DISEASE
     Dosage: INTRALESIONAL
     Dates: start: 20140428, end: 20140428

REACTIONS (5)
  - Cholecystitis [None]
  - Abdominal pain upper [None]
  - Cholelithiasis [None]
  - Oesophageal pain [None]
  - Cholecystectomy [None]

NARRATIVE: CASE EVENT DATE: 20140723
